FAERS Safety Report 18422166 (Version 1)
Quarter: 2020Q4

REPORT INFORMATION
  Report Type: Other
  Country: US (occurrence: US)
  Receive Date: 20201023
  Receipt Date: 20201023
  Transmission Date: 20210114
  Serious: Yes (Other)
  Sender: FDA-Public Use
  Company Number: US-ROCHE-2660707

PATIENT
  Age: 67 Year
  Sex: Female
  Weight: 44.49 kg

DRUGS (1)
  1. OCREVUS [Suspect]
     Active Substance: OCRELIZUMAB
     Indication: RELAPSING-REMITTING MULTIPLE SCLEROSIS
     Dosage: ONGOING ; YES
     Route: 042
     Dates: start: 2018

REACTIONS (4)
  - Multiple sclerosis relapse [Recovered/Resolved]
  - Off label use [Unknown]
  - Intentional product misuse [Unknown]
  - Asthenia [Unknown]

NARRATIVE: CASE EVENT DATE: 202008
